FAERS Safety Report 19972164 (Version 1)
Quarter: 2021Q4

REPORT INFORMATION
  Report Type: Report from Study
  Country: GB (occurrence: GB)
  Receive Date: 20211019
  Receipt Date: 20211019
  Transmission Date: 20220303
  Serious: Yes (Hospitalization)
  Sender: FDA-Public Use
  Company Number: GB-DSJP-DSE-2021-133876

PATIENT
  Age: 58 Year
  Sex: Female

DRUGS (1)
  1. EDOXABAN TOSYLATE [Suspect]
     Active Substance: EDOXABAN TOSYLATE
     Indication: Product used for unknown indication
     Dosage: 30 MG, BID

REACTIONS (3)
  - Aphasia [Unknown]
  - Cerebral infarction [Unknown]
  - Inappropriate schedule of product administration [Unknown]
